FAERS Safety Report 7246882-X (Version None)
Quarter: 2011Q1

REPORT INFORMATION
  Report Type: 
  Country: None (occurrence: None)
  Receive Date: 20110127
  Receipt Date: 20110113
  Transmission Date: 20110831
  Serious: Yes (Death, Hospitalization, Other)
  Sender: FDA-Public Use
  Company Number: FR-ELI_LILLY_AND_COMPANY-FR201010001903

PATIENT
  Age: 75 Year
  Sex: Female

DRUGS (9)
  1. COVERSYL [Concomitant]
  2. DIAMICRON [Concomitant]
  3. PREVISCAN [Concomitant]
  4. FORTEO [Suspect]
     Indication: OSTEOPOROSIS
     Dosage: 20 UG, DAILY (1/D)
     Route: 058
     Dates: start: 20090811, end: 20100301
  5. DIGOXIN [Concomitant]
  6. FORADIL [Concomitant]
  7. OXYGEN [Concomitant]
  8. SPIRIVA [Concomitant]
  9. LEVEMIR [Concomitant]

REACTIONS (3)
  - RESPIRATORY DISTRESS [None]
  - RESPIRATORY FAILURE [None]
  - LUNG DISORDER [None]
